FAERS Safety Report 6334348-0 (Version None)
Quarter: 2009Q3

REPORT INFORMATION
  Report Type: 
  Country: None (occurrence: None)
  Receive Date: 20090831
  Receipt Date: 20080402
  Transmission Date: 20100115
  Serious: Yes (Other)
  Sender: FDA-Public Use
  Company Number: US-ASTRAZENECA-2008UW01173

PATIENT
  Age: 58 Year
  Sex: Female
  Weight: 94.6 kg

DRUGS (10)
  1. SEROQUEL [Suspect]
     Indication: DEPRESSION
     Dosage: 200-600 MG
     Route: 048
     Dates: start: 20040601, end: 20071201
  2. SEROQUEL [Suspect]
     Indication: ANXIETY
     Dosage: 200-600 MG
     Route: 048
     Dates: start: 20040601, end: 20071201
  3. SEROQUEL [Suspect]
     Indication: INSOMNIA
     Dosage: 200-600 MG
     Route: 048
     Dates: start: 20040601, end: 20071201
  4. SEROQUEL [Suspect]
     Route: 048
     Dates: start: 20050303
  5. SEROQUEL [Suspect]
     Route: 048
     Dates: start: 20050303
  6. SEROQUEL [Suspect]
     Route: 048
     Dates: start: 20050303
  7. HYDROCODONE BITARTRATE + ACETAMINOPHEN [Concomitant]
     Indication: PAIN
     Dosage: 5/500 TAB TAKE ONE TABLET BY MOUTH TWO TIMES A DAY AS NEEDED
     Dates: start: 20050217
  8. GEODON [Concomitant]
     Dosage: TAKE TWO CAPSULE BY MOUTH AT BEDTIME
     Dates: start: 20050303
  9. CLONAZEPAM [Concomitant]
     Route: 048
     Dates: start: 20050303
  10. CYMBALTA [Concomitant]
     Route: 048
     Dates: start: 20050303

REACTIONS (6)
  - DIABETES MELLITUS [None]
  - DIABETES MELLITUS INADEQUATE CONTROL [None]
  - DIABETIC KETOACIDOSIS [None]
  - DIABETIC NEPHROPATHY [None]
  - HYPERGLYCAEMIA [None]
  - TYPE 2 DIABETES MELLITUS [None]
